FAERS Safety Report 23432862 (Version 1)
Quarter: 2024Q1

REPORT INFORMATION
  Report Type: Spontaneous
  Country: US (occurrence: None)
  Receive Date: 20240123
  Receipt Date: 20240123
  Transmission Date: 20240410
  Serious: Yes (Hospitalization)
  Sender: FDA-Public Use
  Company Number: None

PATIENT
  Age: 54 Year
  Sex: Male
  Weight: 80.20 kg

DRUGS (1)
  1. MIRCERA [Suspect]
     Active Substance: METHOXY POLYETHYLENE GLYCOL-EPOETIN BETA
     Indication: Anaemia
     Dosage: OTHER FREQUENCY : 1ST DOSE;?
     Route: 042
     Dates: start: 20240117, end: 20240117

REACTIONS (7)
  - Feeling abnormal [None]
  - Hyperhidrosis [None]
  - Foaming at mouth [None]
  - Somnolence [None]
  - Blood pressure diastolic increased [None]
  - Hypertrophic cardiomyopathy [None]
  - Drug hypersensitivity [None]

NARRATIVE: CASE EVENT DATE: 20240117
